FAERS Safety Report 10671088 (Version 2)
Quarter: 2015Q1

REPORT INFORMATION
  Report Type: Spontaneous
  Country: US (occurrence: US)
  Receive Date: 20141223
  Receipt Date: 20150128
  Transmission Date: 20150720
  Serious: Yes (Other)
  Sender: FDA-Public Use
  Company Number: US-GLAXOSMITHKLINE-US2014GSK038317

PATIENT
  Sex: Male

DRUGS (5)
  1. ADVAIR DISKUS [Suspect]
     Active Substance: FLUTICASONE PROPIONATE\SALMETEROL XINAFOATE
     Indication: ASTHMA
     Dosage: 250/50 MCG AT 1 PUFF(S), BID
     Route: 055
     Dates: start: 2004
  2. ADVAIR DISKUS [Suspect]
     Active Substance: FLUTICASONE PROPIONATE\SALMETEROL XINAFOATE
     Dosage: 500/50 MCG AT 1 PUFF(S), BID
     Route: 055
  3. LISINOPRIL. [Concomitant]
     Active Substance: LISINOPRIL
  4. VERAPAMIL [Concomitant]
     Active Substance: VERAPAMIL HYDROCHLORIDE
  5. RAZADYNE [Concomitant]
     Active Substance: GALANTAMINE HYDROBROMIDE

REACTIONS (1)
  - Dementia Alzheimer^s type [Not Recovered/Not Resolved]

NARRATIVE: CASE EVENT DATE: 2011
